FAERS Safety Report 6216507-0 (Version None)
Quarter: 2009Q2

REPORT INFORMATION
  Report Type: 
  Country: None (occurrence: None)
  Receive Date: 20090603
  Receipt Date: 20090603
  Transmission Date: 20091009
  Serious: Yes (Other)
  Sender: FDA-Public Use
  Company Number: None

PATIENT
  Sex: Male
  Weight: 86.4 kg

DRUGS (1)
  1. TRANSDERM SCOP [Suspect]
     Indication: MOTION SICKNESS
     Dosage: 1.5 MG PATCH LAST 3 DA APPLY BEHIND EAR
     Dates: start: 20090511, end: 20090524

REACTIONS (3)
  - DRY MOUTH [None]
  - MYDRIASIS [None]
  - VISION BLURRED [None]
